FAERS Safety Report 9806923 (Version 1)
Quarter: 2014Q1

REPORT INFORMATION
  Report Type: Report from Study
  Country: US (occurrence: US)
  Receive Date: 20140109
  Receipt Date: 20140109
  Transmission Date: 20141002
  Serious: Yes (Hospitalization)
  Sender: FDA-Public Use
  Company Number: US-TAKEDA-2014TUS000095

PATIENT
  Sex: 0

DRUGS (3)
  1. ULORIC [Suspect]
     Indication: GOUT
     Dosage: 80 MG, QD
     Route: 048
     Dates: end: 20131223
  2. COUMADIN                           /00014802/ [Concomitant]
     Indication: CARDIAC VALVE DISEASE
     Route: 048
  3. ALL OTHER THERAPEUTIC PRODUCTS [Concomitant]

REACTIONS (2)
  - Cervical vertebral fracture [Recovering/Resolving]
  - Fall [Unknown]
